FAERS Safety Report 7965767-4 (Version None)
Quarter: 2011Q4

REPORT INFORMATION
  Report Type: 
  Country: None (occurrence: None)
  Receive Date: 20111208
  Receipt Date: 20111202
  Transmission Date: 20120403
  Serious: Yes (Death, Other)
  Sender: FDA-Public Use
  Company Number: JP-ELI_LILLY_AND_COMPANY-JP201111005281

PATIENT
  Sex: Female
  Weight: 61.9 kg

DRUGS (8)
  1. KIDMIN [Concomitant]
     Indication: NUTRITIONAL SUPPORT
     Dosage: 200 ML, QD
     Route: 042
     Dates: start: 20111101, end: 20111115
  2. HUMULIN R [Concomitant]
     Indication: HYPERGLYCAEMIA
     Dosage: 8U, 10U
     Dates: start: 20111112, end: 20111112
  3. HEPARIN [Concomitant]
     Indication: THROMBOSIS PROPHYLAXIS
     Dosage: 3000 U, QD
     Route: 042
     Dates: start: 20111101, end: 20111115
  4. NEOLAMIN 3B [Concomitant]
     Indication: NUTRITIONAL SUPPORT
     Dosage: 1 AMPULE
     Dates: start: 20111101, end: 20111115
  5. CEFOPERAZONE SODIUM [Concomitant]
     Indication: INFECTION
     Dosage: 1 G, BID
     Dates: start: 20111101, end: 20111115
  6. BYETTA [Suspect]
     Indication: DIABETES MELLITUS
     Dosage: 5 UG, QD
     Route: 058
     Dates: start: 20111114, end: 20111114
  7. KN SOL. 3B [Concomitant]
     Indication: NUTRITIONAL SUPPORT
     Dosage: 200 ML, UNK
     Dates: start: 20111101, end: 20111115
  8. HUMULIN R [Concomitant]
     Dosage: 8U, 8U, 12U
     Dates: start: 20111113, end: 20111113

REACTIONS (6)
  - BLOOD PRESSURE DECREASED [None]
  - VOMITING [None]
  - CARDIO-RESPIRATORY ARREST [None]
  - NAUSEA [None]
  - OFF LABEL USE [None]
  - SEPSIS [None]
